FAERS Safety Report 7898635-7 (Version None)
Quarter: 2011Q4

REPORT INFORMATION
  Report Type: 
  Country: None (occurrence: None)
  Receive Date: 20111107
  Receipt Date: 20111107
  Transmission Date: 20120403
  Serious: Yes (Hospitalization)
  Sender: FDA-Public Use
  Company Number: None

PATIENT
  Age: 6 Month
  Sex: Female
  Weight: 45.359 kg

DRUGS (4)
  1. VYVANSE [Concomitant]
     Indication: BIPOLAR DISORDER
     Dosage: 150MG
     Route: 048
     Dates: start: 20091111, end: 20110101
  2. VYVANSE [Concomitant]
     Indication: BRAIN INJURY
     Dosage: 150MG
     Route: 048
     Dates: start: 20091111, end: 20110101
  3. KEPPRA [Suspect]
     Indication: BRAIN INJURY
     Dosage: 250MG 150MG 250MG
     Route: 048
     Dates: start: 20091111, end: 20110301
  4. KEPPRA [Suspect]
     Indication: BIPOLAR DISORDER
     Dosage: 250MG 150MG 250MG
     Route: 048
     Dates: start: 20091111, end: 20110301

REACTIONS (5)
  - GAIT DISTURBANCE [None]
  - INSOMNIA [None]
  - ANGER [None]
  - SPEECH DISORDER [None]
  - ABNORMAL BEHAVIOUR [None]
